FAERS Safety Report 8444443-8 (Version None)
Quarter: 2012Q2

REPORT INFORMATION
  Report Type: 
  Country: None (occurrence: None)
  Receive Date: 20120618
  Receipt Date: 20120615
  Transmission Date: 20120825
  Serious: Yes (Hospitalization)
  Sender: FDA-Public Use
  Company Number: US-BRACCO-008126

PATIENT
  Sex: Female

DRUGS (3)
  1. ISOVUE-300 [Suspect]
     Indication: COMPUTERISED TOMOGRAM
     Route: 042
     Dates: start: 20120529, end: 20120529
  2. ISOVUE-300 [Suspect]
     Indication: OVARIAN CANCER STAGE IV
     Route: 042
     Dates: start: 20120529, end: 20120529
  3. COUMADIN [Concomitant]

REACTIONS (4)
  - CYANOSIS [None]
  - PULSE ABSENT [None]
  - BRAIN OEDEMA [None]
  - GRAND MAL CONVULSION [None]
